FAERS Safety Report 4882031-0 (Version None)
Quarter: 2006Q1

REPORT INFORMATION
  Report Type: 
  Country: None (occurrence: None)
  Receive Date: 20060112
  Receipt Date: 20060105
  Transmission Date: 20060701
  Serious: Yes (Life-Threatening, Hospitalization)
  Sender: FDA-Public Use
  Company Number: 2006-00051

PATIENT
  Age: 70 Year
  Sex: Male

DRUGS (16)
  1. MORPHINE SULFATE [Suspect]
     Indication: ARTHRALGIA
     Dosage: SEE IMAGE
     Dates: start: 19980101, end: 19990101
  2. MORPHINE SULFATE [Suspect]
     Indication: PAIN IN EXTREMITY
     Dosage: SEE IMAGE
     Dates: start: 19980101, end: 19990101
  3. MORPHINE SULFATE [Suspect]
     Indication: ARTHRALGIA
     Dosage: SEE IMAGE
     Dates: start: 19990101
  4. MORPHINE SULFATE [Suspect]
     Indication: PAIN IN EXTREMITY
     Dosage: SEE IMAGE
     Dates: start: 19990101
  5. CLONIDINE [Suspect]
     Indication: ARTHRALGIA
     Dosage: 0.75 MG, DAILY, INTRATHECAL
     Route: 037
     Dates: start: 19980101, end: 19990101
  6. CLONIDINE [Suspect]
     Indication: PAIN IN EXTREMITY
     Dosage: 0.75 MG, DAILY, INTRATHECAL
     Route: 037
     Dates: start: 19980101, end: 19990101
  7. CLONIDINE [Suspect]
     Indication: ARTHRALGIA
     Dosage: 0.75 MG, DAILY, INTRATHECAL
     Route: 037
     Dates: start: 19990101
  8. CLONIDINE [Suspect]
     Indication: PAIN IN EXTREMITY
     Dosage: 0.75 MG, DAILY, INTRATHECAL
     Route: 037
     Dates: start: 19990101
  9. HYDROMORPHONE HCL [Concomitant]
  10. METHIMAZOLE [Concomitant]
  11. DICLOFENAC (DICLOFENAC) [Concomitant]
  12. BROMAZEPAM (BROMAZEPAM) [Concomitant]
  13. DOXEZEPINE (DOXEPIN) [Concomitant]
  14. CARBAMAZEPINE [Concomitant]
  15. DISTRANEURINE (CLOMETHIAZOLE EDISILATE) [Concomitant]
  16. HALOPERIDOL [Concomitant]

REACTIONS (4)
  - DRUG INEFFECTIVE [None]
  - NEUROLOGICAL COMPLICATION FROM DEVICE [None]
  - PARALYSIS [None]
  - SPINAL CORD INJURY [None]
